FAERS Safety Report 6085848-2 (Version None)
Quarter: 2009Q1

REPORT INFORMATION
  Report Type: 
  Country: None (occurrence: None)
  Receive Date: 20090220
  Receipt Date: 20090213
  Transmission Date: 20090719
  Serious: Yes (Hospitalization)
  Sender: FDA-Public Use
  Company Number: B0548925A

PATIENT
  Sex: Female
  Weight: 67.7 kg

DRUGS (2)
  1. TOPOTECAN [Suspect]
     Dosage: .98MG EVERY 3 MONTHS
     Route: 042
     Dates: start: 20081112
  2. CARBOPLATIN [Suspect]
     Dosage: 366.71MG MONTHLY
     Route: 042
     Dates: start: 20081114

REACTIONS (3)
  - CONSTIPATION [None]
  - ILEUS [None]
  - INTESTINAL OBSTRUCTION [None]
